FAERS Safety Report 19306706 (Version 1)
Quarter: 2021Q2

REPORT INFORMATION
  Report Type: Spontaneous
  Country: GB (occurrence: GB)
  Receive Date: 20210526
  Receipt Date: 20210526
  Transmission Date: 20210717
  Serious: Yes (Other)
  Sender: FDA-Public Use
  Company Number: GB-TEVA-2021-GB-1914822

PATIENT
  Sex: Female

DRUGS (2)
  1. CARBOPLATIN. [Suspect]
     Active Substance: CARBOPLATIN
     Indication: BRAIN STEM GLIOMA
     Dosage: 0.18 MG/ML (2 CYCLES) IN COMBINATION WITH SODIUM VALPROATE
     Route: 050
  2. SODIUM VALPROATE [Suspect]
     Active Substance: VALPROATE SODIUM
     Indication: BRAIN STEM GLIOMA
     Dosage: 14.4 MG/ML (4 CYCLES) IN COMBINATION WITH CARBOPLATIN
     Route: 050

REACTIONS (2)
  - VIth nerve paralysis [Recovered/Resolved]
  - Off label use [Unknown]
